FAERS Safety Report 13749030 (Version 1)
Quarter: 2017Q3

REPORT INFORMATION
  Report Type: Spontaneous
  Country: US (occurrence: US)
  Receive Date: 20170712
  Receipt Date: 20170712
  Transmission Date: 20171127
  Serious: Yes (Other)
  Sender: FDA-Public Use
  Company Number: None

PATIENT
  Age: 55 Year
  Sex: Male
  Weight: 144 kg

DRUGS (1)
  1. ONDANSETRON TAB, USP [Suspect]
     Active Substance: ONDANSETRON
     Indication: NAUSEA
     Dosage: ?          OTHER STRENGTH:MG;QUANTITY:1 TABLET(S);?
     Route: 048
     Dates: start: 20090731, end: 20170706

REACTIONS (10)
  - Muscle twitching [None]
  - Anxiety [None]
  - Dizziness [None]
  - Middle insomnia [None]
  - Palpitations [None]
  - Dyspnoea [None]
  - Drug withdrawal syndrome [None]
  - Heart rate decreased [None]
  - Initial insomnia [None]
  - Respiratory disorder [None]

NARRATIVE: CASE EVENT DATE: 20170708
